FAERS Safety Report 20407221 (Version 2)
Quarter: 2022Q4

REPORT INFORMATION
  Report Type: Spontaneous
  Country: US (occurrence: US)
  Receive Date: 20220131
  Receipt Date: 20221116
  Transmission Date: 20230113
  Serious: Yes (Other)
  Sender: FDA-Public Use
  Company Number: US-PFIZER INC-202200113930

PATIENT
  Age: 74 Year
  Sex: Female

DRUGS (1)
  1. AROMASIN [Suspect]
     Active Substance: EXEMESTANE
     Indication: Breast cancer female
     Dosage: 25 MG

REACTIONS (1)
  - Neutropenia [Unknown]
